FAERS Safety Report 9099862 (Version 1)
Quarter: 2013Q1

REPORT INFORMATION
  Report Type: Spontaneous
  Country: JP (occurrence: JP)
  Receive Date: 20130214
  Receipt Date: 20130214
  Transmission Date: 20140127
  Serious: Yes (Hospitalization)
  Sender: FDA-Public Use
  Company Number: JP-EISAI INC-E7389-03522-SPO-JP

PATIENT
  Age: 54 Year
  Sex: Female

DRUGS (4)
  1. HALAVEN [Suspect]
     Indication: BREAST CANCER RECURRENT
     Route: 041
     Dates: start: 20121213
  2. HALAVEN [Suspect]
     Dates: start: 20121102
  3. GASTER D [Concomitant]
     Indication: PROPHYLAXIS AGAINST GASTROINTESTINAL ULCER
     Route: 048
     Dates: start: 20120823
  4. AMLODIN [Concomitant]
     Indication: HYPERTENSION
     Route: 048

REACTIONS (1)
  - Gastric ulcer haemorrhage [Recovering/Resolving]
